FAERS Safety Report 16547991 (Version 1)
Quarter: 2019Q3

REPORT INFORMATION
  Report Type: Spontaneous
  Country: DE (occurrence: DE)
  Receive Date: 20190709
  Receipt Date: 20190709
  Transmission Date: 20191004
  Serious: Yes (Death, Hospitalization)
  Sender: FDA-Public Use
  Company Number: DE-TEVA-2019-DE-1073210

PATIENT
  Age: 84 Year
  Sex: Female

DRUGS (19)
  1. PREDNISOLONE. [Suspect]
     Active Substance: PREDNISOLONE
     Dosage: 5 MG, 1-0-0-0
  2. TRIMIPRAMINE [Concomitant]
     Active Substance: TRIMIPRAMINE
     Dosage: 25 MG, 0-0-0-1
  3. ATROVENT [Concomitant]
     Active Substance: IPRATROPIUM BROMIDE
     Dosage: NK MG, 1-1-1-0, DOSIERAEROSOL
     Route: 055
  4. PANTOPRAZOL [Concomitant]
     Active Substance: PANTOPRAZOLE SODIUM
     Dosage: 20 MG, 1-0-1-0
  5. ALENDRONIC ACID [Suspect]
     Active Substance: ALENDRONIC ACID
     Dosage: 70 MG, 1 X /WEEK MONDAY
  6. SERTRALINE [Concomitant]
     Active Substance: SERTRALINE HYDROCHLORIDE
     Dosage: 100 MG, 1-0-0-0
  7. EMESAN [Concomitant]
     Dosage: NK MG, DEMAND
  8. TILIDINE/NALOXONE [Concomitant]
     Active Substance: NALOXONE HYDROCHLORIDE\TILIDINE HYDROCHLORIDE
     Dosage: 100|8 MG, 1-0-1-0
  9. LEVODOP-NEURAXPHARM 100/25MG [Concomitant]
     Active Substance: CARBIDOPA\LEVODOPA
     Dosage: 100|25 MG, 0-0-0-2
  10. CALCIUM [Concomitant]
     Active Substance: CALCIUM
     Dosage: NK MG, 0-1-0-0
  11. METAMIZOL [Concomitant]
     Active Substance: METAMIZOLE SODIUM
     Dosage: 500 MG, 1-1-1-1
  12. LEVODOPA/CARBIDOPA [Concomitant]
     Active Substance: CARBIDOPA\LEVODOPA
     Dosage: 100|25 MG, 0-1-1-0
  13. THEOPHYLLIN [Concomitant]
     Active Substance: THEOPHYLLINE ANHYDROUS
     Dosage: 20 MG, 1-0-1-0
  14. RAMIPRIL. [Concomitant]
     Active Substance: RAMIPRIL
     Dosage: 5 MG, 0.5-0-0-0
  15. METOPROLOL. [Concomitant]
     Active Substance: METOPROLOL
     Dosage: 47.5 MG, 0.5-0-0.5-0
  16. ASS 100 [Suspect]
     Active Substance: ASPIRIN
     Dosage: 100 MG, 1-0-0-0
  17. FORMOTEROL [Concomitant]
     Active Substance: FORMOTEROL
     Dosage: NK MG, 1-0-1-0, DOSIERAEROSOL
     Route: 055
  18. BUDESONID [Concomitant]
     Active Substance: BUDESONIDE
     Dosage: 0.2 MG, 2-0-2-0, DOSIERAEROSOL
     Route: 055
  19. TORASEMID [Concomitant]
     Active Substance: TORSEMIDE
     Dosage: 10 MG, 0.5-0-0-0

REACTIONS (3)
  - Abdominal pain upper [Unknown]
  - Nausea [Unknown]
  - Vomiting [Unknown]
